FAERS Safety Report 6054890-X (Version None)
Quarter: 2009Q1

REPORT INFORMATION
  Report Type: 
  Country: None (occurrence: None)
  Receive Date: 20090128
  Receipt Date: 20090122
  Transmission Date: 20090719
  Serious: Yes (Death, Other)
  Sender: FDA-Public Use
  Company Number: JP-BAYER-200910220BYL

PATIENT
  Age: 42 Year
  Sex: Female

DRUGS (4)
  1. FLUDARA [Suspect]
     Indication: MYELODYSPLASTIC SYNDROME
     Dosage: AS USED: 180 MG
     Route: 065
  2. CYCLOPHOSPHAMIDE [Concomitant]
     Indication: STEM CELL TRANSPLANT
     Dosage: AS USED: 7.2 G
     Route: 065
  3. CYCLOSPORINE [Concomitant]
     Indication: PROPHYLAXIS AGAINST GRAFT VERSUS HOST DISEASE
     Route: 065
  4. MYCOPHENOLATE MOFETIL [Concomitant]
     Indication: PROPHYLAXIS AGAINST GRAFT VERSUS HOST DISEASE
     Route: 065

REACTIONS (2)
  - SEPTIC SHOCK [None]
  - THROMBOTIC MICROANGIOPATHY [None]
